FAERS Safety Report 11772820 (Version 1)
Quarter: 2015Q4

REPORT INFORMATION
  Report Type: Spontaneous
  Country: US (occurrence: US)
  Receive Date: 20151124
  Receipt Date: 20151124
  Transmission Date: 20160304
  Serious: Yes (Hospitalization, Other)
  Sender: FDA-Public Use
  Company Number: US-MALLINCKRODT-T201504285

PATIENT
  Age: 59 Year
  Sex: Female

DRUGS (2)
  1. GABLOFEN [Suspect]
     Active Substance: BACLOFEN
     Dosage: 3.3 ?G/ML, HR (CURRENT DOSE)
     Route: 037
  2. GABLOFEN [Suspect]
     Active Substance: BACLOFEN
     Indication: MUSCLE SPASTICITY
     Dosage: 3.5 ?G/ML, HR (OLD DOSE)
     Route: 037

REACTIONS (6)
  - Asthenia [Unknown]
  - Implant site pain [Unknown]
  - Device issue [Unknown]
  - Back pain [Unknown]
  - Withdrawal syndrome [Unknown]
  - Swelling [Unknown]

NARRATIVE: CASE EVENT DATE: 20130816
